FAERS Safety Report 8051259-3 (Version None)
Quarter: 2012Q1

REPORT INFORMATION
  Report Type: 
  Country: None (occurrence: None)
  Receive Date: 20120117
  Receipt Date: 20120105
  Transmission Date: 20120608
  Serious: Yes (Other)
  Sender: FDA-Public Use
  Company Number: US-ASTRAZENECA-2012SE01300

PATIENT

DRUGS (5)
  1. PRILOSEC OTC [Suspect]
     Dosage: ONCE IN THE MORNING AND ONCE AT NIGHT
     Route: 048
     Dates: start: 20111001
  2. EPINEPHRINE [Suspect]
     Dosage: IN THE MORNING
  3. TRIAMTERENE [Concomitant]
     Indication: BALANCE DISORDER
     Dosage: IN THE MORNING
  4. PRILOSEC OTC [Suspect]
     Route: 048
  5. PRILOSEC OTC [Suspect]
     Route: 048
     Dates: start: 20120101

REACTIONS (7)
  - MIGRAINE [None]
  - CONDITION AGGRAVATED [None]
  - BALANCE DISORDER [None]
  - DIZZINESS [None]
  - GASTRITIS [None]
  - ABDOMINAL PAIN UPPER [None]
  - VESTIBULAR NEURONITIS [None]
